FAERS Safety Report 6230044-9 (Version None)
Quarter: 2009Q2

REPORT INFORMATION
  Report Type: 
  Country: None (occurrence: None)
  Receive Date: 20090615
  Receipt Date: 20090601
  Transmission Date: 20091009
  Serious: Yes (Life-Threatening, Hospitalization)
  Sender: FDA-Public Use
  Company Number: GB-MYLANLABS-2009S1009750

PATIENT
  Age: 48 Year
  Sex: Male

DRUGS (5)
  1. BACLOFEN [Suspect]
     Indication: DRUG USE FOR UNKNOWN INDICATION
  2. QUETIAPINE FUMARATE [Suspect]
     Indication: DRUG USE FOR UNKNOWN INDICATION
  3. ACETYLSALICYLIC ACID [Concomitant]
     Indication: DRUG USE FOR UNKNOWN INDICATION
  4. GABAPENTIN [Concomitant]
     Indication: DRUG USE FOR UNKNOWN INDICATION
  5. MIRTAZAPINE [Concomitant]
     Indication: DRUG USE FOR UNKNOWN INDICATION

REACTIONS (18)
  - AREFLEXIA [None]
  - BLOOD AMYLASE [None]
  - COMA [None]
  - DIABETES INSIPIDUS [None]
  - ELECTROCARDIOGRAM QT PROLONGED [None]
  - HYPERAMYLASAEMIA [None]
  - HYPERTENSION [None]
  - HYPOTENSION [None]
  - HYPOTHERMIA [None]
  - HYPOTONIA [None]
  - HYPOXIA [None]
  - MUSCLE TWITCHING [None]
  - MYDRIASIS [None]
  - OVERDOSE [None]
  - PARANOIA [None]
  - PUPILLARY REFLEX IMPAIRED [None]
  - RESPIRATORY RATE DECREASED [None]
  - SINUS BRADYCARDIA [None]
